FAERS Safety Report 8471984-X (Version None)
Quarter: 2012Q2

REPORT INFORMATION
  Report Type: 
  Country: None (occurrence: None)
  Receive Date: 20120627
  Receipt Date: 20120612
  Transmission Date: 20120825
  Serious: No
  Sender: FDA-Public Use
  Company Number: PL-UCBSA-060180

PATIENT
  Age: 28 Year
  Sex: Female

DRUGS (7)
  1. KEPPRA [Suspect]
     Dates: start: 20101101, end: 20110501
  2. KEPPRA [Suspect]
     Dosage: 1000-750
     Dates: start: 20110501
  3. CARBAMAZEPINE [Concomitant]
     Dosage: 2 X 300
     Dates: start: 20110501
  4. FOLIC ACID [Concomitant]
     Dates: end: 20110201
  5. CARBAMAZEPINE [Concomitant]
     Dosage: UP TO 2 X 400 MG
     Dates: end: 20110501
  6. CLOBAZAM [Concomitant]
  7. FOLIC ACID [Concomitant]
     Dates: start: 20110201

REACTIONS (2)
  - LEUKOPENIA [None]
  - CONVULSION [None]
